FAERS Safety Report 7399715-5 (Version None)
Quarter: 2011Q2

REPORT INFORMATION
  Report Type: 
  Country: None (occurrence: None)
  Receive Date: 20110407
  Receipt Date: 20110330
  Transmission Date: 20111010
  Serious: Yes (Hospitalization)
  Sender: FDA-Public Use
  Company Number: US-ELI_LILLY_AND_COMPANY-US201104000288

PATIENT
  Sex: Female

DRUGS (4)
  1. HUMALOG MIX 75/25 [Suspect]
     Dosage: 15 U, EACH MORNING
     Dates: start: 20060101
  2. HUMALOG MIX 75/25 [Suspect]
     Indication: TYPE 1 DIABETES MELLITUS
     Dosage: 15 U, EACH MORNING
     Dates: start: 20060101
  3. HUMALOG MIX 75/25 [Suspect]
     Dosage: 10 U, OTHER
     Dates: start: 20060101
  4. HUMALOG MIX 75/25 [Suspect]
     Dosage: 10 U, OTHER
     Dates: start: 20060101

REACTIONS (5)
  - BLOOD POTASSIUM DECREASED [None]
  - MOBILITY DECREASED [None]
  - THINKING ABNORMAL [None]
  - MEMORY IMPAIRMENT [None]
  - THYROID DISORDER [None]
